FAERS Safety Report 15232405 (Version 1)
Quarter: 2018Q3

REPORT INFORMATION
  Report Type: Report from Study
  Country: GB (occurrence: GB)
  Receive Date: 20180802
  Receipt Date: 20180802
  Transmission Date: 20181010
  Serious: Yes (Hospitalization)
  Sender: FDA-Public Use
  Company Number: GB-JNJFOC-20180716954

PATIENT
  Age: 22 Year
  Sex: Male

DRUGS (1)
  1. STELARA [Suspect]
     Active Substance: USTEKINUMAB
     Indication: PSORIASIS
     Dosage: DOSE: 90MG/1ML
     Route: 058
     Dates: start: 2014

REACTIONS (1)
  - Viral infection [Unknown]

NARRATIVE: CASE EVENT DATE: 201807
